FAERS Safety Report 25916234 (Version 2)
Quarter: 2025Q4

REPORT INFORMATION
  Report Type: Spontaneous
  Country: EU (occurrence: EU)
  Receive Date: 20251014
  Receipt Date: 20251103
  Transmission Date: 20260118
  Serious: Yes (Hospitalization)
  Sender: EMD SERONO INC
  Company Number: EU-Merck Healthcare KGaA-2025051107

PATIENT
  Age: 74 Year
  Sex: Female

DRUGS (6)
  1. EUTHYROX [Suspect]
     Active Substance: LEVOTHYROXINE SODIUM
     Indication: Hypothyroidism
  2. EUTHYROX [Suspect]
     Active Substance: LEVOTHYROXINE SODIUM
  3. EUTHYROX [Suspect]
     Active Substance: LEVOTHYROXINE SODIUM
     Dosage: EUTHYROX 100 MICROGRAM TABLETS
  4. EUTHYROX [Suspect]
     Active Substance: LEVOTHYROXINE SODIUM
  5. CALCIUM [Concomitant]
     Active Substance: CALCIUM
     Indication: Product used for unknown indication
  6. CHOLECALCIFEROL [Concomitant]
     Active Substance: CHOLECALCIFEROL
     Indication: Product used for unknown indication

REACTIONS (4)
  - Loss of consciousness [Unknown]
  - Fall [Unknown]
  - Contusion [Unknown]
  - Dizziness [Unknown]

NARRATIVE: CASE EVENT DATE: 20250801
